FAERS Safety Report 4429343-2 (Version None)
Quarter: 2004Q3

REPORT INFORMATION
  Report Type: 
  Country: None (occurrence: None)
  Receive Date: 20040819
  Receipt Date: 20040810
  Transmission Date: 20050211
  Serious: Yes (Death)
  Sender: FDA-Public Use
  Company Number: US-JNJFOC-20040803316

PATIENT
  Age: 41 Year
  Sex: Male

DRUGS (18)
  1. DURAGESIC [Suspect]
     Route: 062
  2. LORTAB [Concomitant]
  3. LORTAB [Concomitant]
  4. BLOOD PRESSURE MEDICATION [Concomitant]
  5. ZONIGRAM [Concomitant]
  6. LOMOTIL [Concomitant]
  7. LOMOTIL [Concomitant]
     Dosage: AS NECESSARY
  8. LIPITOR [Concomitant]
  9. BISOPROLOL FUMARATE AND HYDROCHLOROTHIAZIDE [Concomitant]
  10. ASPIRIN [Concomitant]
  11. PRILOSEC [Concomitant]
  12. LEXAPRO [Concomitant]
  13. THERAPEUTIC-M [Concomitant]
  14. THERAPEUTIC-M [Concomitant]
  15. THERAPEUTIC-M [Concomitant]
  16. SINUS MEDICATION [Concomitant]
  17. SINUS MEDICATION [Concomitant]
  18. SINUS MEDICATION [Concomitant]

REACTIONS (6)
  - BACK PAIN [None]
  - CONDITION AGGRAVATED [None]
  - DYSARTHRIA [None]
  - INCOHERENT [None]
  - MYOCARDIAL INFARCTION [None]
  - POST PROCEDURAL COMPLICATION [None]
